FAERS Safety Report 12095211 (Version 2)
Quarter: 2016Q2

REPORT INFORMATION
  Report Type: Spontaneous
  Country: GB (occurrence: GB)
  Receive Date: 20160219
  Receipt Date: 20160504
  Transmission Date: 20160815
  Serious: Yes (Hospitalization, Other)
  Sender: FDA-Public Use
  Company Number: GB-REGENERON PHARMACEUTICALS, INC.-2016-12210

PATIENT

DRUGS (2)
  1. EYLEA [Suspect]
     Active Substance: AFLIBERCEPT
     Indication: NEOVASCULAR AGE-RELATED MACULAR DEGENERATION
     Dosage: UNK
  2. EYLEA [Suspect]
     Active Substance: AFLIBERCEPT
     Dosage: 5TH DOSE
     Dates: start: 20141211

REACTIONS (8)
  - Non-infectious endophthalmitis [Unknown]
  - Blindness [Unknown]
  - Vitreous floaters [Unknown]
  - Ciliary body disorder [Unknown]
  - Vitreous floaters [Unknown]
  - Iridocyclitis [Recovering/Resolving]
  - Vitritis [Unknown]
  - Ocular discomfort [Unknown]

NARRATIVE: CASE EVENT DATE: 20141213
